FAERS Safety Report 8419384-2 (Version None)
Quarter: 2012Q2

REPORT INFORMATION
  Report Type: 
  Country: None (occurrence: None)
  Receive Date: 20120607
  Receipt Date: 20120531
  Transmission Date: 20120825
  Serious: Yes (Hospitalization)
  Sender: FDA-Public Use
  Company Number: US-GLAXOSMITHKLINE-A0867474A

PATIENT
  Age: 49 Year
  Sex: Male
  Weight: 122.7 kg

DRUGS (6)
  1. ZOVIRAX [Concomitant]
  2. VERAPAMIL [Concomitant]
  3. AVANDIA [Suspect]
     Indication: DIABETES MELLITUS
     Dosage: 4MG PER DAY
     Route: 048
     Dates: start: 20020531, end: 20100201
  4. TARKA [Concomitant]
  5. VASOTEC [Concomitant]
  6. GLIPIZIDE [Concomitant]

REACTIONS (4)
  - MYOCARDIAL INFARCTION [None]
  - CARDIAC FAILURE CONGESTIVE [None]
  - CORONARY ARTERY DISEASE [None]
  - HYPERLIPIDAEMIA [None]
